FAERS Safety Report 8407737-8 (Version None)
Quarter: 2012Q2

REPORT INFORMATION
  Report Type: 
  Country: None (occurrence: None)
  Receive Date: 20120604
  Receipt Date: 20120531
  Transmission Date: 20120825
  Serious: Yes (Other)
  Sender: FDA-Public Use
  Company Number: US-GLAXOSMITHKLINE-A0942721A

PATIENT
  Age: 51 Year
  Sex: Female

DRUGS (6)
  1. FLECAINIDE ACETATE [Concomitant]
  2. FLOVENT [Suspect]
     Indication: ASTHMA
     Dosage: 2PUFF TWICE PER DAY
     Route: 055
  3. SEREVENT [Suspect]
     Indication: ASTHMA
     Dosage: 1PUFF TWICE PER DAY
     Route: 055
     Dates: start: 19940601, end: 19941201
  4. LIPITOR [Concomitant]
  5. COMBIVENT [Concomitant]
  6. XOPENEX [Concomitant]

REACTIONS (2)
  - ATRIAL FIBRILLATION [None]
  - DRY MOUTH [None]
